FAERS Safety Report 18979559 (Version 2)
Quarter: 2021Q3

REPORT INFORMATION
  Report Type: Report from Study
  Country: US (occurrence: US)
  Receive Date: 20210308
  Receipt Date: 20210908
  Transmission Date: 20211014
  Serious: Yes (Hospitalization)
  Sender: FDA-Public Use
  Company Number: US-BIOGEN-2021BI00986928

PATIENT
  Age: 26 Year
  Sex: Female

DRUGS (4)
  1. TECFIDERA [Suspect]
     Active Substance: DIMETHYL FUMARATE
     Indication: MULTIPLE SCLEROSIS
     Route: 065
     Dates: start: 20170526, end: 20170626
  2. TECFIDERA [Suspect]
     Active Substance: DIMETHYL FUMARATE
     Route: 065
     Dates: start: 20181026, end: 20191017
  3. TECFIDERA [Suspect]
     Active Substance: DIMETHYL FUMARATE
     Dosage: STARTING DOSE
     Route: 048
     Dates: start: 20210212
  4. TECFIDERA [Suspect]
     Active Substance: DIMETHYL FUMARATE
     Dosage: MAINTENANCE DOSE
     Route: 048

REACTIONS (8)
  - Bone pain [Recovered/Resolved]
  - Pulmonary thrombosis [Recovered/Resolved]
  - Gait disturbance [Unknown]
  - Psychomotor hyperactivity [Recovered/Resolved]
  - Memory impairment [Unknown]
  - Arthralgia [Recovered/Resolved]
  - Hypertension [Recovered/Resolved]
  - Eye injury [Recovered/Resolved]

NARRATIVE: CASE EVENT DATE: 202102
